FAERS Safety Report 6417908-8 (Version None)
Quarter: 2009Q4

REPORT INFORMATION
  Report Type: 
  Country: None (occurrence: None)
  Receive Date: 20091028
  Receipt Date: 20091019
  Transmission Date: 20100525
  Serious: Yes (Other)
  Sender: FDA-Public Use
  Company Number: B0593751A

PATIENT
  Sex: Male

DRUGS (4)
  1. SEREVENT [Suspect]
     Dosage: 50MCG TWICE PER DAY
     Route: 055
     Dates: start: 20070501, end: 20080201
  2. SEREVENT [Suspect]
     Dosage: 50MCG TWICE PER DAY
     Route: 055
     Dates: start: 20090707
  3. PULMICORT [Concomitant]
     Route: 055
     Dates: start: 20070501, end: 20080201
  4. PULMICORT [Concomitant]
     Route: 055
     Dates: start: 20090701

REACTIONS (1)
  - VISUAL ACUITY REDUCED [None]
